FAERS Safety Report 10203476 (Version 1)
Quarter: 2014Q2

REPORT INFORMATION
  Report Type: Spontaneous
  Country: GB (occurrence: None)
  Receive Date: 20140523
  Receipt Date: 20140523
  Transmission Date: 20141212
  Serious: Yes (Other)
  Sender: FDA-Public Use
  Company Number: 2350244

PATIENT
  Age: 11 Month
  Sex: Male
  Weight: 10.3 kg

DRUGS (1)
  1. CEFTRIAXONE SODIUM [Suspect]
     Indication: ARTHRITIS BACTERIAL
     Route: 030
     Dates: start: 20140404, end: 20140428

REACTIONS (2)
  - Injection site mass [None]
  - Rash generalised [None]
